FAERS Safety Report 4284101-7 (Version None)
Quarter: 2004Q1

REPORT INFORMATION
  Report Type: 
  Country: None (occurrence: None)
  Receive Date: 20040203
  Receipt Date: 20031227
  Transmission Date: 20041129
  Serious: No
  Sender: FDA-Public Use
  Company Number: 200311629JP

PATIENT
  Age: 41 Year
  Sex: Female

DRUGS (5)
  1. ARAVA [Suspect]
     Indication: RHEUMATOID ARTHRITIS
     Route: 048
     Dates: start: 20031017, end: 20031228
  2. RIMATIL [Concomitant]
     Indication: RHEUMATOID ARTHRITIS
     Route: 048
     Dates: end: 20031009
  3. LOXONIN [Concomitant]
     Indication: RHEUMATOID ARTHRITIS
     Route: 048
     Dates: start: 20031017, end: 20031009
  4. MUCOSTA [Concomitant]
     Indication: GASTRITIS
     Route: 048
     Dates: start: 20031017, end: 20031009
  5. VOLTAREN [Concomitant]
     Indication: RHEUMATOID ARTHRITIS
     Route: 048
     Dates: end: 20031009

REACTIONS (2)
  - RASH [None]
  - SHIFT TO THE LEFT [None]
